FAERS Safety Report 23484227 (Version 4)
Quarter: 2024Q2

REPORT INFORMATION
  Report Type: Report from Study
  Country: US (occurrence: US)
  Receive Date: 20240206
  Receipt Date: 20240509
  Transmission Date: 20240716
  Serious: Yes (Other)
  Sender: FDA-Public Use
  Company Number: US-ABBVIE-5619311

PATIENT
  Sex: Female

DRUGS (4)
  1. HUMIRA [Suspect]
     Active Substance: ADALIMUMAB
     Indication: Hidradenitis
     Dosage: LAST ADMIN DATE 2022?FORM STRENGTH -40 MILLIGRAM?CITRATE FREE
     Route: 058
     Dates: start: 20220214
  2. HUMIRA [Suspect]
     Active Substance: ADALIMUMAB
     Dosage: FORM STRENGTH WAS 40 MILLIGRAM?CITRATE FREE
     Route: 058
     Dates: start: 20240131
  3. HUMIRA [Suspect]
     Active Substance: ADALIMUMAB
     Dosage: LAST ADMIN DATE 2022?FORM STRENGTH- 40 MILLIGRAM?CITRATE FREE
     Route: 058
     Dates: start: 20220131
  4. HUMIRA [Suspect]
     Active Substance: ADALIMUMAB
     Route: 058
     Dates: start: 20220305

REACTIONS (5)
  - Hidradenitis [Unknown]
  - SARS-CoV-2 test positive [Unknown]
  - Deafness unilateral [Unknown]
  - Post procedural swelling [Not Recovered/Not Resolved]
  - Hypoaesthesia [Not Recovered/Not Resolved]

NARRATIVE: CASE EVENT DATE: 20240101
